FAERS Safety Report 5526689-1 (Version None)
Quarter: 2007Q4

REPORT INFORMATION
  Report Type: 
  Country: None (occurrence: None)
  Receive Date: 20071120
  Receipt Date: 20061116
  Transmission Date: 20080405
  Serious: Yes (Other)
  Sender: FDA-Public Use
  Company Number: 2006143321

PATIENT
  Age: 64 Year
  Sex: Female
  Weight: 69.4003 kg

DRUGS (10)
  1. TIKOSYN [Suspect]
     Indication: ATRIAL FIBRILLATION
     Dosage: 1000 MCG (500 MCG,2 IN 1 D)
     Dates: start: 20060301, end: 20061116
  2. NORVASC [Concomitant]
  3. LIPITOR [Concomitant]
  4. COUMADIN [Concomitant]
  5. CALCIUM (CALCIUM) [Concomitant]
  6. VITAMIN E [Concomitant]
  7. MULTIVITAMIN [Concomitant]
  8. LUTEIN (XANTHOPHYLL) [Concomitant]
  9. MIRAPEX [Concomitant]
  10. THYROID TAB [Concomitant]

REACTIONS (1)
  - VENTRICULAR TACHYCARDIA [None]
